FAERS Safety Report 5537114-9 (Version None)
Quarter: 2007Q4

REPORT INFORMATION
  Report Type: 
  Country: None (occurrence: None)
  Receive Date: 20071205
  Receipt Date: 20071205
  Transmission Date: 20080405
  Serious: Yes (Life-Threatening, Other)
  Sender: FDA-Public Use
  Company Number: None

PATIENT
  Age: 63 Year

DRUGS (1)
  1. CYMBALTA [Suspect]
     Indication: BIPOLAR DISORDER
     Dosage: 60MG ONE PER DAY
     Dates: start: 20050501, end: 20071201

REACTIONS (3)
  - CONDITION AGGRAVATED [None]
  - CRYING [None]
  - SUICIDAL IDEATION [None]
